FAERS Safety Report 12907254 (Version 1)
Quarter: 2016Q4

REPORT INFORMATION
  Report Type: Report from Study
  Country: US (occurrence: US)
  Receive Date: 20161103
  Receipt Date: 20161103
  Transmission Date: 20170207
  Serious: Yes (Hospitalization)
  Sender: FDA-Public Use
  Company Number: US-BAYER-2016-179151

PATIENT
  Age: 76 Year
  Sex: Male

DRUGS (2)
  1. XOFIGO [Suspect]
     Active Substance: RADIUM RA-223 DICHLORIDE
     Indication: METASTASES TO BONE
     Dosage: 111.80, ONCE EVERY 28 DAYS
     Route: 042
     Dates: start: 20160929
  2. XOFIGO [Suspect]
     Active Substance: RADIUM RA-223 DICHLORIDE
     Indication: PROSTATE CANCER STAGE IV
     Dosage: 114.5 ?CI, EVERY 28 DAYS
     Route: 042
     Dates: start: 20160816

REACTIONS (4)
  - Mental status changes [None]
  - Malaise [None]
  - Prostatic specific antigen increased [None]
  - Pyrexia [None]

NARRATIVE: CASE EVENT DATE: 20161101
